FAERS Safety Report 15684549 (Version 1)
Quarter: 2018Q4

REPORT INFORMATION
  Report Type: Spontaneous
  Country: JP (occurrence: JP)
  Receive Date: 20181204
  Receipt Date: 20181204
  Transmission Date: 20190205
  Serious: Yes (Death)
  Sender: FDA-Public Use
  Company Number: JP-MALLINCKRODT-T201805244

PATIENT
  Age: 41 Year
  Sex: Female
  Weight: 48 kg

DRUGS (8)
  1. MAGMITT [Concomitant]
     Active Substance: MAGNESIUM OXIDE
     Indication: CONSTIPATION
     Dosage: 990 MG, UNK
     Route: 048
     Dates: end: 20180530
  2. RISPERIDONE. [Concomitant]
     Active Substance: RISPERIDONE
     Indication: DELIRIUM
     Dosage: UNK
     Route: 048
     Dates: end: 20180530
  3. METHADONE [Suspect]
     Active Substance: METHADONE HYDROCHLORIDE
     Indication: CANCER PAIN
     Dosage: 35 MG, UNK
     Route: 048
     Dates: end: 20180530
  4. BETAMETHASONE. [Concomitant]
     Active Substance: BETAMETHASONE
     Indication: MALAISE
     Dosage: UNK
     Route: 048
     Dates: end: 20180530
  5. BROTIZOLAM [Concomitant]
     Active Substance: BROTIZOLAM
     Indication: INSOMNIA
     Dosage: UNK
     Route: 048
     Dates: end: 20180530
  6. FLUNITRAZEPAM [Concomitant]
     Active Substance: FLUNITRAZEPAM
     Indication: INSOMNIA
     Dosage: UNK
     Route: 048
     Dates: end: 20180530
  7. NARURAPID [Concomitant]
     Dosage: 1 MG, UNK
     Route: 048
     Dates: end: 20180530
  8. TAKECAB [Concomitant]
     Active Substance: VONOPRAZAN FUMURATE
     Indication: GASTROOESOPHAGEAL REFLUX DISEASE
     Dosage: UNK
     Route: 048
     Dates: end: 20180530

REACTIONS (3)
  - Leiomyosarcoma [Fatal]
  - Disease progression [Fatal]
  - Constipation [Unknown]
